FAERS Safety Report 7935901-0 (Version None)
Quarter: 2011Q4

REPORT INFORMATION
  Report Type: 
  Country: None (occurrence: None)
  Receive Date: 20111123
  Receipt Date: 20111113
  Transmission Date: 20120403
  Serious: Yes (Other)
  Sender: FDA-Public Use
  Company Number: BE-ABBOTT-11P-013-0873601-00

PATIENT
  Sex: Male

DRUGS (3)
  1. IBUPROFEN [Concomitant]
     Indication: PAIN
     Dosage: 1/DAY
     Route: 048
     Dates: start: 20090101
  2. HUMIRA [Suspect]
     Indication: ANKYLOSING SPONDYLITIS
     Dates: start: 20110325, end: 20110710
  3. DAFALGAN 500 [Concomitant]
     Indication: PAIN
     Dosage: 1/DAY
     Route: 048
     Dates: start: 20090101

REACTIONS (4)
  - HYPERSENSITIVITY [None]
  - DYSPNOEA [None]
  - MALAISE [None]
  - DYSPHONIA [None]
